FAERS Safety Report 8985926 (Version 1)
Quarter: 2012Q4

REPORT INFORMATION
  Report Type: Report from Study
  Country: US (occurrence: US)
  Receive Date: 20121226
  Receipt Date: 20121226
  Transmission Date: 20130627
  Serious: No
  Sender: FDA-Public Use
  Company Number: US-ABBOTT-12P-163-0895465-00

PATIENT
  Sex: Male
  Weight: 68.55 kg

DRUGS (3)
  1. LUPRON DEPOT 30 MG [Suspect]
     Indication: PROSTATE CANCER
     Dates: start: 20110822
  2. CASODEX [Concomitant]
     Indication: PROSTATE CANCER
  3. UNKNOWN MEDICATION [Concomitant]
     Indication: GOUT

REACTIONS (1)
  - Diabetes mellitus [Not Recovered/Not Resolved]
